FAERS Safety Report 7858235-1 (Version None)
Quarter: 2011Q4

REPORT INFORMATION
  Report Type: 
  Country: None (occurrence: None)
  Receive Date: 20111027
  Receipt Date: 20111012
  Transmission Date: 20120403
  Serious: Yes (Hospitalization)
  Sender: FDA-Public Use
  Company Number: US-BAYER-2011-052519

PATIENT
  Age: 46 Year
  Sex: Female
  Weight: 73 kg

DRUGS (12)
  1. DROSPIRENONE AND ETHINYL ESTRADIOL [Suspect]
     Indication: ACNE
     Dosage: UNK
     Dates: start: 20080101, end: 20090101
  2. ANAPROX [Concomitant]
     Dosage: UNK
     Dates: start: 20090206
  3. YAZ [Suspect]
     Indication: PREMENSTRUAL SYNDROME
  4. MULTI-VITAMIN [Concomitant]
     Dosage: UNK
     Dates: start: 20081201, end: 20090201
  5. CEFTIN [Concomitant]
     Indication: SINUSITIS
     Dosage: UNK
     Dates: start: 20090202
  6. YASMIN [Suspect]
     Indication: ACNE
     Dosage: UNK
     Dates: start: 20080101, end: 20090101
  7. DROSPIRENONE AND ETHINYL ESTRADIOL [Suspect]
     Indication: PREMENSTRUAL SYNDROME
  8. YAZ [Suspect]
     Indication: ACNE
     Dosage: UNK
     Dates: start: 20080101, end: 20090101
  9. SENOKOT [Concomitant]
     Dosage: UNK
     Dates: start: 20090206
  10. YASMIN [Suspect]
     Indication: PREMENSTRUAL SYNDROME
  11. ALLEGRA-D 12 HOUR [Concomitant]
     Dosage: UNK
     Dates: start: 20080227, end: 20090119
  12. EXCEDRIN (MIGRAINE) [Concomitant]
     Dosage: UNK
     Dates: start: 20081201, end: 20090201

REACTIONS (2)
  - CEREBROVASCULAR ACCIDENT [None]
  - PAIN [None]
